FAERS Safety Report 8611366-0 (Version None)
Quarter: 2012Q3

REPORT INFORMATION
  Report Type: 
  Country: None (occurrence: None)
  Receive Date: 20120822
  Receipt Date: 20120813
  Transmission Date: 20120928
  Serious: Yes (Hospitalization)
  Sender: FDA-Public Use
  Company Number: US-ELI_LILLY_AND_COMPANY-US201208004403

PATIENT
  Sex: Female

DRUGS (1)
  1. ZYPREXA RELPREVV [Suspect]
     Dosage: 210 MG, UNKNOWN
     Route: 030
     Dates: start: 20120619

REACTIONS (1)
  - HOSPITALISATION [None]
